FAERS Safety Report 17289115 (Version 4)
Quarter: 2020Q4

REPORT INFORMATION
  Report Type: Spontaneous
  Country: US (occurrence: US)
  Receive Date: 20200120
  Receipt Date: 20201201
  Transmission Date: 20210113
  Serious: Yes (Other)
  Sender: FDA-Public Use
  Company Number: US-PFIZER INC-2020025878

PATIENT
  Age: 75 Year
  Sex: Female

DRUGS (1)
  1. IBRANCE [Suspect]
     Active Substance: PALBOCICLIB
     Indication: BREAST CANCER FEMALE
     Dosage: 75 MG, CYCLIC (ONCE DAILY FOR 21D THEN 7D OFF)
     Route: 048
     Dates: start: 20190711

REACTIONS (5)
  - Hip fracture [Unknown]
  - White blood cell count decreased [Unknown]
  - Urinary tract infection [Not Recovered/Not Resolved]
  - Fall [Unknown]
  - Neutrophil count decreased [Not Recovered/Not Resolved]
